FAERS Safety Report 17209194 (Version 1)
Quarter: 2019Q4

REPORT INFORMATION
  Report Type: Spontaneous
  Country: US (occurrence: US)
  Receive Date: 20191227
  Receipt Date: 20191227
  Transmission Date: 20200122
  Serious: Yes (Hospitalization, Disabling)
  Sender: FDA-Public Use
  Company Number: US-NOVOPROD-703674

PATIENT
  Sex: Female

DRUGS (1)
  1. VICTOZA [Suspect]
     Active Substance: LIRAGLUTIDE
     Indication: PRODUCT USED FOR UNKNOWN INDICATION
     Dosage: UNK
     Route: 058

REACTIONS (8)
  - Disability [Unknown]
  - Hospitalisation [Unknown]
  - Gastrointestinal disorder [Unknown]
  - Impaired gastric emptying [Unknown]
  - Endoscopy [Unknown]
  - Eosinophilic oesophagitis [Unknown]
  - Malaise [Unknown]
  - Vomiting [Unknown]
